FAERS Safety Report 7633126-X (Version None)
Quarter: 2011Q3

REPORT INFORMATION
  Report Type: 
  Country: None (occurrence: None)
  Receive Date: 20110725
  Receipt Date: 20110714
  Transmission Date: 20111222
  Serious: Yes (Hospitalization)
  Sender: FDA-Public Use
  Company Number: SI-JNJFOC-20110707132

PATIENT
  Age: 55 Year
  Sex: Male
  Weight: 106 kg

DRUGS (5)
  1. REMICADE [Suspect]
     Route: 042
     Dates: start: 20110414, end: 20110414
  2. NAPROSYN [Concomitant]
  3. INDAPAMIDE [Concomitant]
  4. REMICADE [Suspect]
     Indication: PRODUCT USED FOR UNKNOWN INDICATION
     Route: 042
     Dates: start: 20101111
  5. LORISTA [Concomitant]

REACTIONS (2)
  - CYTOKINE STORM [None]
  - INFUSION RELATED REACTION [None]
